FAERS Safety Report 11128645 (Version 3)
Quarter: 2015Q2

REPORT INFORMATION
  Report Type: Spontaneous
  Country: JP (occurrence: JP)
  Receive Date: 20150521
  Receipt Date: 20150604
  Transmission Date: 20150821
  Serious: Yes (Other)
  Sender: FDA-Public Use
  Company Number: JP-TEVA-563273ISR

PATIENT
  Age: 71 Year
  Sex: Male

DRUGS (2)
  1. CISPLATIN. [Suspect]
     Active Substance: CISPLATIN
     Indication: OESOPHAGEAL CARCINOMA
     Dosage: TWO COURSES OF 80 MG/M 2 ON DAY 1
     Route: 042
  2. FLUOROURACIL. [Concomitant]
     Active Substance: FLUOROURACIL
     Indication: OESOPHAGEAL CARCINOMA
     Dosage: TWO COURSES OF 800 MG/M2, CONTINUOUS INFUSION, ON DAYS 1-5
     Route: 041

REACTIONS (2)
  - Vena cava thrombosis [Unknown]
  - Pulmonary embolism [Unknown]
